FAERS Safety Report 10428424 (Version 1)
Quarter: 2014Q3

REPORT INFORMATION
  Report Type: Spontaneous
  Country: FR (occurrence: FR)
  Receive Date: 20140903
  Receipt Date: 20140903
  Transmission Date: 20150326
  Serious: Yes (Congenital Anomaly)
  Sender: FDA-Public Use
  Company Number: FR-GLAXOSMITHKLINE-B1026766A

PATIENT
  Age: 0 Year
  Sex: Male
  Weight: 3.6 kg

DRUGS (15)
  1. LARGACTIL [Suspect]
     Active Substance: CHLORPROMAZINE
     Indication: FOETAL EXPOSURE DURING PREGNANCY
     Route: 064
     Dates: start: 2010, end: 2010
  2. SOLUPRED [Suspect]
     Active Substance: PREDNISOLONE
     Indication: FOETAL EXPOSURE DURING PREGNANCY
     Route: 064
     Dates: start: 2010, end: 2010
  3. MOTILIUM [Suspect]
     Active Substance: DOMPERIDONE
     Indication: FOETAL EXPOSURE DURING PREGNANCY
     Route: 064
     Dates: start: 2010, end: 2010
  4. POLYSILANE [Concomitant]
     Indication: FOETAL EXPOSURE DURING PREGNANCY
     Route: 064
     Dates: start: 2010, end: 2010
  5. AZANTAC [Suspect]
     Active Substance: RANITIDINE HYDROCHLORIDE
     Indication: FOETAL EXPOSURE DURING PREGNANCY
     Route: 064
     Dates: start: 2010, end: 2010
  6. BRICANYL [Suspect]
     Active Substance: TERBUTALINE SULFATE
     Indication: PRODUCT USED FOR UNKNOWN INDICATION
     Route: 064
  7. FORLAX [Suspect]
     Active Substance: POLYETHYLENE GLYCOL 4000
     Indication: FOETAL EXPOSURE DURING PREGNANCY
     Route: 064
     Dates: start: 2010, end: 2010
  8. VOGALENE [Suspect]
     Active Substance: METOPIMAZINE
     Indication: FOETAL EXPOSURE DURING PREGNANCY
     Route: 064
     Dates: start: 2010, end: 2010
  9. ZOPHREN [Suspect]
     Active Substance: ONDANSETRON
     Indication: FOETAL EXPOSURE DURING PREGNANCY
     Route: 064
     Dates: start: 2010, end: 2010
  10. DROLEPTAN [Suspect]
     Active Substance: DROPERIDOL
     Indication: FOETAL EXPOSURE DURING PREGNANCY
     Route: 064
     Dates: start: 2010, end: 2010
  11. HALDOL [Suspect]
     Active Substance: HALOPERIDOL
     Indication: FOETAL EXPOSURE DURING PREGNANCY
     Route: 064
     Dates: start: 2010, end: 2010
  12. NORMACOL [Suspect]
     Active Substance: KARAYA GUM
     Indication: FOETAL EXPOSURE DURING PREGNANCY
     Route: 064
     Dates: start: 2010, end: 2010
  13. DEXAMETHASONE. [Suspect]
     Active Substance: DEXAMETHASONE
     Indication: FOETAL EXPOSURE DURING PREGNANCY
     Route: 064
     Dates: start: 2010, end: 2010
  14. INEXIUM [Suspect]
     Active Substance: ESOMEPRAZOLE
     Indication: FOETAL EXPOSURE DURING PREGNANCY
     Route: 064
     Dates: start: 2010, end: 2010
  15. PRIMPERAN [Suspect]
     Active Substance: METOCLOPRAMIDE HYDROCHLORIDE
     Indication: FOETAL EXPOSURE DURING PREGNANCY
     Route: 064
     Dates: start: 2010, end: 2010

REACTIONS (4)
  - Pelvic kidney [Not Recovered/Not Resolved]
  - Renal disorder [Not Recovered/Not Resolved]
  - Foetal exposure during pregnancy [Unknown]
  - Congenital hydronephrosis [Recovered/Resolved]

NARRATIVE: CASE EVENT DATE: 2010
